FAERS Safety Report 15537401 (Version 1)
Quarter: 2018Q4

REPORT INFORMATION
  Report Type: Spontaneous
  Country: US (occurrence: US)
  Receive Date: 20181016
  Receipt Date: 20181016
  Transmission Date: 20190205
  Serious: No
  Sender: FDA-Public Use
  Company Number: None

PATIENT
  Age: 63 Year
  Sex: Female

DRUGS (6)
  1. SILDENAFIL CAMBER [Suspect]
     Active Substance: SILDENAFIL
     Indication: PULMONARY HYPERTENSION
     Route: 048
     Dates: start: 20040427
  2. QVAR [Concomitant]
     Active Substance: BECLOMETHASONE DIPROPIONATE
  3. CALCIUM CARB [Concomitant]
     Active Substance: CALCIUM CARBONATE
  4. FLAXSEED [Concomitant]
     Active Substance: FLAX SEED
  5. VEMTOLIN HFA AER [Concomitant]
  6. PERFOROMIST [Suspect]
     Active Substance: FORMOTEROL FUMARATE DIHYDRATE

REACTIONS (1)
  - Lung transplant [None]

NARRATIVE: CASE EVENT DATE: 20181012
